FAERS Safety Report 16364681 (Version 1)
Quarter: 2019Q2

REPORT INFORMATION
  Report Type: Spontaneous
  Country: US (occurrence: US)
  Receive Date: 20190529
  Receipt Date: 20190529
  Transmission Date: 20190711
  Serious: No
  Sender: FDA-Public Use
  Company Number: US-AMGEN-USASP2019081926

PATIENT
  Age: 54 Year
  Sex: Male

DRUGS (4)
  1. CRESTOR [Concomitant]
     Active Substance: ROSUVASTATIN CALCIUM
     Dosage: 40 MILLIGRAM
  2. ZETIA [Concomitant]
     Active Substance: EZETIMIBE
  3. FENOFIBRATE. [Concomitant]
     Active Substance: FENOFIBRATE
  4. REPATHA [Suspect]
     Active Substance: EVOLOCUMAB
     Indication: HYPERCHOLESTEROLAEMIA
     Dosage: 140 MILLIGRAM, Q2WK
     Route: 065
     Dates: start: 201902

REACTIONS (2)
  - Arthralgia [Unknown]
  - Myalgia [Unknown]
